FAERS Safety Report 4947217-5 (Version None)
Quarter: 2006Q1

REPORT INFORMATION
  Report Type: 
  Country: None (occurrence: None)
  Receive Date: 20060313
  Receipt Date: 20060228
  Transmission Date: 20060701
  Serious: Yes (Other)
  Sender: FDA-Public Use
  Company Number: HQWYE935416AUG05

PATIENT
  Age: 55 Year
  Sex: Female

DRUGS (9)
  1. PREMPRO (CONJUGATED ESTROGENS/ MEDROXYPROGESTERONE MENOPAUSAL SYMPTOMS [Suspect]
     Indication: MENOPAUSE
  2. CENESTIN [Suspect]
     Indication: HOT FLUSH
  3. CENESTIN [Suspect]
     Indication: MENOPAUSAL SYMPTOMS
  4. ESTRACE [Suspect]
  5. PREMARIN [Suspect]
     Indication: HOT FLUSH
  6. PREMARIN [Suspect]
     Indication: MENOPAUSAL SYMPTOMS
  7. PROMETRIUM [Suspect]
     Indication: HOT FLUSH
  8. PROMETRIUM [Suspect]
     Indication: MENOPAUSAL SYMPTOMS
  9. PROVERA [Suspect]

REACTIONS (9)
  - ARTHRALGIA [None]
  - BREAST CANCER METASTATIC [None]
  - DEPRESSION [None]
  - METASTASES TO LYMPH NODES [None]
  - MYALGIA [None]
  - OESTROGEN RECEPTOR ASSAY POSITIVE [None]
  - PAIN [None]
  - PROGESTERONE RECEPTOR ASSAY POSITIVE [None]
  - SKIN CANCER [None]
